FAERS Safety Report 22125065 (Version 4)
Quarter: 2024Q1

REPORT INFORMATION
  Report Type: Spontaneous
  Country: US (occurrence: US)
  Receive Date: 20230322
  Receipt Date: 20240320
  Transmission Date: 20240409
  Serious: Yes (Hospitalization, Other)
  Sender: FDA-Public Use
  Company Number: US-PFIZER INC-PV202300053161

PATIENT
  Age: 71 Year
  Sex: Female

DRUGS (1)
  1. IBRANCE [Suspect]
     Active Substance: PALBOCICLIB
     Dosage: DAILY X 21 DAYS FOLLOWED BY 7 DAYS REST REPEAT CYCLE
     Route: 048

REACTIONS (2)
  - Hip fracture [Unknown]
  - Nasopharyngitis [Unknown]
